FAERS Safety Report 23084431 (Version 4)
Quarter: 2024Q1

REPORT INFORMATION
  Report Type: Report from Study
  Country: US (occurrence: US)
  Receive Date: 20231019
  Receipt Date: 20240129
  Transmission Date: 20240409
  Serious: Yes (Hospitalization)
  Sender: FDA-Public Use
  Company Number: US-TAKEDA-2023TUS083121

PATIENT
  Age: 70 Year
  Sex: Female

DRUGS (1)
  1. BRIGATINIB [Suspect]
     Active Substance: BRIGATINIB
     Indication: Lung neoplasm malignant
     Dosage: 180 MILLIGRAM, QD
     Route: 048

REACTIONS (4)
  - Hospitalisation [Unknown]
  - Photosensitivity reaction [Unknown]
  - Rash [Unknown]
  - Pancreatic enzymes increased [Unknown]

NARRATIVE: CASE EVENT DATE: 20230820
